FAERS Safety Report 14239009 (Version 1)
Quarter: 2017Q4

REPORT INFORMATION
  Report Type: Other
  Country: BE (occurrence: BE)
  Receive Date: 20171130
  Receipt Date: 20171130
  Transmission Date: 20180321
  Serious: Yes (Life-Threatening, Hospitalization, Other)
  Sender: FDA-Public Use
  Company Number: BE-ASTELLAS-2017US048243

PATIENT
  Age: 79 Year
  Sex: Male

DRUGS (19)
  1. TAMSULOSIN [Suspect]
     Active Substance: TAMSULOSIN
     Indication: HYPERTENSION
     Dosage: 0.4 MG, ONCE DAILY
     Route: 048
  2. OXYNORM [Interacting]
     Active Substance: OXYCODONE HYDROCHLORIDE
     Dosage: ON DEMAND MAXIMUM 80MG/24HOURS, AS NEEDED
     Route: 048
     Dates: start: 20171012, end: 20171021
  3. GLUCOPHAGE [Suspect]
     Active Substance: METFORMIN HYDROCHLORIDE
     Indication: DIABETES MELLITUS
     Route: 048
     Dates: start: 20171009, end: 20171021
  4. XGEVA [Concomitant]
     Active Substance: DENOSUMAB
     Indication: PRODUCT USED FOR UNKNOWN INDICATION
     Route: 058
     Dates: start: 20160401
  5. XTANDI [Suspect]
     Active Substance: ENZALUTAMIDE
     Indication: HORMONE-REFRACTORY PROSTATE CANCER
     Route: 048
     Dates: start: 20170915
  6. OXYCONTIN [Interacting]
     Active Substance: OXYCODONE HYDROCHLORIDE
     Route: 048
     Dates: start: 20171019, end: 20171019
  7. OXYCONTIN [Interacting]
     Active Substance: OXYCODONE HYDROCHLORIDE
     Route: 048
     Dates: start: 20171020, end: 20171020
  8. AMLOR [Concomitant]
     Active Substance: AMLODIPINE BESYLATE
     Indication: HYPERTENSION
     Route: 048
     Dates: start: 20171019
  9. DUPHALAC [Concomitant]
     Active Substance: LACTULOSE
     Indication: CONSTIPATION
     Dosage: 3 DF (SACHETS), AS NEEDED (PER 24 HOURS, ON DEMAND)
     Route: 048
     Dates: start: 20171010, end: 20171018
  10. OXYCONTIN [Interacting]
     Active Substance: OXYCODONE HYDROCHLORIDE
     Indication: PAIN
     Route: 048
     Dates: start: 20171018, end: 20171018
  11. MORPHINE [Concomitant]
     Active Substance: MORPHINE
     Indication: BACK PAIN
     Dosage: UNK UNK, UNKNOWN FREQ.
     Route: 065
  12. LAXOBERON [Concomitant]
     Active Substance: SODIUM PICOSULFATE
     Indication: CONSTIPATION
     Dosage: UNK UNK, UNKNOWN FREQ.
     Route: 065
  13. OXYNORM [Interacting]
     Active Substance: OXYCODONE HYDROCHLORIDE
     Indication: PAIN
     Dosage: ON DEMAND MAXIMUM 40MG/24HOURS, AS NEEDED
     Route: 048
     Dates: start: 20171010, end: 20171012
  14. LIPANTIL [Concomitant]
     Active Substance: FENOFIBRATE
     Indication: PRODUCT USED FOR UNKNOWN INDICATION
     Route: 048
     Dates: start: 20171009, end: 20171021
  15. PANTOMED                           /00178901/ [Concomitant]
     Indication: PROPHYLAXIS
     Route: 048
     Dates: start: 20171009, end: 20171021
  16. ZESTRIL [Concomitant]
     Active Substance: LISINOPRIL
     Indication: HYPERTENSION
     Route: 048
     Dates: start: 20171009, end: 20171021
  17. AZARGA [Concomitant]
     Active Substance: BRINZOLAMIDE\TIMOLOL MALEATE
     Indication: PRODUCT USED FOR UNKNOWN INDICATION
     Dosage: 0.25 ML, TWICE DAILY (IN MORNING AND EVENING)
     Route: 065
  18. MOVICOL [Concomitant]
     Active Substance: POLYETHYLENE GLYCOL 3350\POTASSIUM CHLORIDE\SODIUM BICARBONATE\SODIUM CHLORIDE
     Indication: CONSTIPATION
     Dosage: 1 DF (SACHET), ONCE DAILY
     Route: 048
     Dates: start: 20171018
  19. D-VITAL CALCIUM [Concomitant]
     Indication: PROPHYLAXIS
     Route: 048
     Dates: start: 20171009

REACTIONS (20)
  - Somnolence [Recovering/Resolving]
  - Renal failure [Unknown]
  - Toxicity to various agents [Unknown]
  - Dehydration [Recovering/Resolving]
  - Drug-induced liver injury [Unknown]
  - Oliguria [Recovering/Resolving]
  - Hyperkalaemia [Recovering/Resolving]
  - Guillain-Barre syndrome [Unknown]
  - Dysphagia [Unknown]
  - Restless legs syndrome [Unknown]
  - Myoclonus [Recovering/Resolving]
  - Escherichia urinary tract infection [Recovering/Resolving]
  - Hepatic encephalopathy [Unknown]
  - Confusional state [Recovering/Resolving]
  - Fall [Unknown]
  - Off label use [Unknown]
  - Cancer pain [Recovering/Resolving]
  - Acute kidney injury [Recovering/Resolving]
  - Hepatocellular injury [Recovering/Resolving]
  - Drug interaction [Unknown]

NARRATIVE: CASE EVENT DATE: 20171013
